FAERS Safety Report 7784471 (Version 2)
Quarter: 2013Q1

REPORT INFORMATION
  Report Type: Report from Study
  Country: US (occurrence: US)
  Receive Date: 20110129
  Receipt Date: 20130129
  Transmission Date: 20140127
  Serious: No
  Sender: FDA-Public Use
  Company Number: US-ABBOTT-10P-163-0657150-00

PATIENT
  Age: 26 Year
  Sex: Female

DRUGS (8)
  1. HUMIRA 40 MG/0.8 ML PEN [Suspect]
     Indication: CROHN^S DISEASE
     Dates: start: 201001
  2. 6-NP [Concomitant]
     Indication: CROHN^S DISEASE
  3. ASACOL [Concomitant]
     Indication: INFLAMMATION
  4. DEPO-PROVERA [Concomitant]
     Indication: CONTRACEPTION
  5. VITAMIN D [Concomitant]
     Indication: PRODUCT USED FOR UNKNOWN INDICATION
  6. SLOW-FE [Concomitant]
     Indication: MINERAL SUPPLEMENTATION
  7. B 12 INJECTION [Concomitant]
     Indication: PRODUCT USED FOR UNKNOWN INDICATION
  8. ORTHOTRICYCLEN [Concomitant]
     Indication: CONTRACEPTION
     Dosage: DAILY
     Route: 048

REACTIONS (11)
  - Injection site pain [Not Recovered/Not Resolved]
  - Injection site erythema [Unknown]
  - Joint crepitation [Unknown]
  - Osteoporosis [Unknown]
  - Insomnia [Unknown]
  - Vision blurred [Unknown]
  - Muscle twitching [Unknown]
  - Muscle spasms [Unknown]
  - Pigmentation disorder [Not Recovered/Not Resolved]
  - Skin discolouration [Not Recovered/Not Resolved]
  - Unevaluable event [Not Recovered/Not Resolved]
